FAERS Safety Report 6507943 (Version 4)
Quarter: 2020Q3

REPORT INFORMATION
  Report Type: Report from Study
  Country: US (occurrence: US)
  Receive Date: 20071218
  Receipt Date: 20090220
  Transmission Date: 20201105
  Serious: Yes (Other)
  Sender: FDA-Public Use
  Company Number: US-JNJFOC-20071110117

PATIENT
  Age: 14 Year
  Sex: Female
  Weight: 39.7 kg

DRUGS (12)
  1. CISAPRIDE [Suspect]
     Active Substance: CISAPRIDE
     Indication: GASTROOESOPHAGEAL REFLUX DISEASE
     Route: 048
  2. INTAL [Concomitant]
     Active Substance: CROMOLYN SODIUM
     Indication: BRONCHIAL HYPERREACTIVITY
  3. CISAPRIDE [Suspect]
     Active Substance: CISAPRIDE
     Route: 048
  4. FLONASE [Concomitant]
     Active Substance: FLUTICASONE PROPIONATE
     Indication: NASAL CONGESTION
  5. KEPPRA [Concomitant]
     Active Substance: LEVETIRACETAM
     Indication: SEIZURE
  6. BACLOFEN. [Concomitant]
     Active Substance: BACLOFEN
     Dosage: ONE TABLET THREE TIMES DAILY AND ONE AND A HALF TABLETS ONCE DAILY
     Route: 048
  7. TRANXENE T?TAB [Concomitant]
     Active Substance: CLORAZEPATE DIPOTASSIUM
     Indication: SEIZURE
  8. PROVENTIL [Concomitant]
     Active Substance: ALBUTEROL
     Indication: BRONCHIAL HYPERREACTIVITY
  9. KEPPRA [Concomitant]
     Active Substance: LEVETIRACETAM
  10. PRILOSEC [Concomitant]
     Active Substance: OMEPRAZOLE MAGNESIUM
     Indication: GASTROOESOPHAGEAL REFLUX DISEASE
  11. CISAPRIDE [Suspect]
     Active Substance: CISAPRIDE
     Route: 048
  12. COLACE [Concomitant]
     Active Substance: DOCUSATE SODIUM
     Indication: CONSTIPATION

REACTIONS (1)
  - Electrocardiogram QT prolonged [Recovered/Resolved]

NARRATIVE: CASE EVENT DATE: 20061102
